FAERS Safety Report 12453913 (Version 4)
Quarter: 2016Q3

REPORT INFORMATION
  Report Type: Report from Study
  Country: DE (occurrence: DE)
  Receive Date: 20160609
  Receipt Date: 20160906
  Transmission Date: 20161109
  Serious: Yes (Death, Life-Threatening, Hospitalization, Other)
  Sender: FDA-Public Use
  Company Number: PHHY2016DE066418

PATIENT
  Sex: Male
  Weight: 85 kg

DRUGS (1)
  1. EXJADE [Suspect]
     Active Substance: DEFERASIROX
     Indication: IRON OVERLOAD
     Dosage: 500 MG, QD (6 MG/KG, QD)
     Route: 048
     Dates: start: 20160201

REACTIONS (10)
  - Atrial fibrillation [Unknown]
  - Leukocytosis [Recovered/Resolved]
  - Sepsis [Fatal]
  - General physical health deterioration [Fatal]
  - Diarrhoea [Fatal]
  - Bacteraemia [Fatal]
  - Blood creatinine increased [Unknown]
  - Pyrexia [Fatal]
  - Neutropenia [Fatal]
  - Multiple organ dysfunction syndrome [Fatal]

NARRATIVE: CASE EVENT DATE: 20160307
